FAERS Safety Report 7827804-7 (Version None)
Quarter: 2011Q4

REPORT INFORMATION
  Report Type: 
  Country: None (occurrence: None)
  Receive Date: 20111019
  Receipt Date: 20111019
  Transmission Date: 20120403
  Serious: Yes (Hospitalization)
  Sender: FDA-Public Use
  Company Number: None

PATIENT
  Age: 66 Year
  Sex: Male
  Weight: 62.1 kg

DRUGS (1)
  1. ERLOTINIB HYDROCHLORIDE [Suspect]
     Dosage: 100MG PO DAILY
     Route: 048
     Dates: start: 20110524, end: 20110905

REACTIONS (3)
  - SEPSIS [None]
  - URINARY TRACT INFECTION [None]
  - METABOLIC ENCEPHALOPATHY [None]
